FAERS Safety Report 7997315-7 (Version None)
Quarter: 2011Q4

REPORT INFORMATION
  Report Type: 
  Country: None (occurrence: None)
  Receive Date: 20111221
  Receipt Date: 20111214
  Transmission Date: 20120403
  Serious: Yes (Other)
  Sender: FDA-Public Use
  Company Number: FR-UCBSA-047733

PATIENT
  Age: 37 Year
  Sex: Female

DRUGS (2)
  1. XYZAL [Suspect]
     Indication: IDIOPATHIC URTICARIA
     Dosage: TOTAL DAILY DOSE : 5 MG
     Route: 048
     Dates: start: 20101201
  2. ATARAX [Suspect]
     Indication: IDIOPATHIC URTICARIA
     Dosage: TOTAL DAILY DOSE : 25 MG
     Route: 048
     Dates: start: 20101201

REACTIONS (3)
  - DRUG INEFFECTIVE [None]
  - URTICARIA [None]
  - FACE OEDEMA [None]
